FAERS Safety Report 5705713-7 (Version None)
Quarter: 2008Q2

REPORT INFORMATION
  Report Type: 
  Country: None (occurrence: None)
  Receive Date: 20080415
  Receipt Date: 20080409
  Transmission Date: 20081010
  Serious: Yes (Other)
  Sender: FDA-Public Use
  Company Number: A0721901A

PATIENT
  Age: 49 Year
  Sex: Female

DRUGS (2)
  1. LAMICTAL [Suspect]
     Indication: BIPOLAR DISORDER
     Dosage: 450MG PER DAY
     Route: 048
     Dates: start: 20040101, end: 20041201
  2. NO CONCURRENT MEDICATION [Concomitant]

REACTIONS (5)
  - DYSPNOEA [None]
  - LOSS OF CONSCIOUSNESS [None]
  - OVERDOSE [None]
  - VISION BLURRED [None]
  - VOMITING [None]
